FAERS Safety Report 7206473-3 (Version None)
Quarter: 2011Q1

REPORT INFORMATION
  Report Type: 
  Country: None (occurrence: None)
  Receive Date: 20110103
  Receipt Date: 20101222
  Transmission Date: 20110831
  Serious: Yes (Death, Other)
  Sender: FDA-Public Use
  Company Number: JP-PFIZER INC-2010179554

PATIENT
  Age: 23 Year
  Sex: Male
  Weight: 54 kg

DRUGS (2)
  1. HYDROCORTISONE [Suspect]
     Indication: HORMONE REPLACEMENT THERAPY
     Dosage: 30 MG PER DAY
     Route: 065
  2. TAKEPRON [Suspect]
     Dosage: 30 MG PER DAY
     Route: 065

REACTIONS (3)
  - PINEAL NEOPLASM [None]
  - GASTRITIS BACTERIAL [None]
  - PORTAL VENOUS GAS [None]
